FAERS Safety Report 6535054-X (Version None)
Quarter: 2010Q1

REPORT INFORMATION
  Report Type: 
  Country: None (occurrence: None)
  Receive Date: 20100111
  Receipt Date: 20100111
  Transmission Date: 20100710
  Serious: Yes (Other)
  Sender: FDA-Public Use
  Company Number: None

PATIENT
  Age: 52 Year
  Sex: Female
  Weight: 68.0396 kg

DRUGS (1)
  1. ASTEPRO [Suspect]
     Indication: MULTIPLE ALLERGIES
     Dosage: 1 SPRAY EA. NOSTRIL ONCE A DAY NASAL
     Route: 045
     Dates: start: 20100109, end: 20100109

REACTIONS (10)
  - CONFUSIONAL STATE [None]
  - DIZZINESS [None]
  - DYSGEUSIA [None]
  - DYSPNOEA [None]
  - EAR DISCOMFORT [None]
  - OROPHARYNGEAL PAIN [None]
  - PALPITATIONS [None]
  - SINUS DISORDER [None]
  - SNEEZING [None]
  - VISUAL IMPAIRMENT [None]
